FAERS Safety Report 4764076-4 (Version None)
Quarter: 2005Q3

REPORT INFORMATION
  Report Type: 
  Country: None (occurrence: None)
  Receive Date: 20050906
  Receipt Date: 20050824
  Transmission Date: 20060218
  Serious: Yes (Hospitalization)
  Sender: FDA-Public Use
  Company Number: 2005120062

PATIENT
  Age: 51 Year
  Sex: Male

DRUGS (9)
  1. CAVERJECT [Suspect]
     Indication: ERECTILE DYSFUNCTION
     Dosage: 20 MCG (20 MCG, 1 IN 1 D) INTRACAVERNOSA
     Route: 017
  2. CELEXA [Suspect]
     Indication: DEPRESSION
  3. NOVOLIN N [Concomitant]
  4. NOVOLIN R [Concomitant]
  5. ACETYLSALICYLIC ACID SRT [Concomitant]
  6. EZETIMIBE (EZETIMIBE) [Concomitant]
  7. LISINOPRIL [Concomitant]
  8. ZOCOR [Concomitant]
  9. METOPROLOL TARTRATE [Concomitant]

REACTIONS (3)
  - MYOCARDIAL INFARCTION [None]
  - PENILE PAIN [None]
  - THERAPEUTIC RESPONSE DECREASED [None]
